FAERS Safety Report 24352482 (Version 1)
Quarter: 2024Q3

REPORT INFORMATION
  Report Type: Other
  Country: CA (occurrence: CA)
  Receive Date: 20240923
  Receipt Date: 20240923
  Transmission Date: 20241017
  Serious: Yes (Other)
  Sender: B BRAUN
  Company Number: CA-B.Braun Medical Inc.-2161927

PATIENT
  Age: 58 Year
  Sex: Male

DRUGS (5)
  1. SODIUM CHLORIDE [Suspect]
     Active Substance: SODIUM CHLORIDE
  2. MIDAZOLAM [Suspect]
     Active Substance: MIDAZOLAM
  3. PREDNISONE [Concomitant]
     Active Substance: PREDNISONE
  4. LIDOCAINE [Suspect]
     Active Substance: LIDOCAINE
  5. FENTANYL [Suspect]
     Active Substance: FENTANYL\FENTANYL CITRATE

REACTIONS (1)
  - Hypoxia [Recovered/Resolved]
